FAERS Safety Report 15438536 (Version 1)
Quarter: 2018Q3

REPORT INFORMATION
  Report Type: Spontaneous
  Country: US (occurrence: US)
  Receive Date: 20180924
  Receipt Date: 20180924
  Transmission Date: 20181010
  Serious: Yes (Life-Threatening, Hospitalization, Disabling)
  Sender: FDA-Public Use
  Company Number: None

PATIENT
  Age: 64 Year
  Sex: Female

DRUGS (11)
  1. ASPIRIN. [Concomitant]
     Active Substance: ASPIRIN
  2. CALCIUM [Concomitant]
     Active Substance: CALCIUM
  3. SAEIG [Concomitant]
  4. METOPROLOL. [Concomitant]
     Active Substance: METOPROLOL
  5. NAC [Concomitant]
  6. PROTONIX [Concomitant]
     Active Substance: PANTOPRAZOLE SODIUM
  7. GABA [Concomitant]
     Active Substance: HOMEOPATHICS
  8. VITAMIN D3 [Concomitant]
     Active Substance: CHOLECALCIFEROL
  9. MAGNESIUM [Concomitant]
     Active Substance: MAGNESIUM
  10. DR KINGS NATURAL MEDICINE ANXIETY + NERVOUSNESS SPRAY (HOMEOPATHICS) [Suspect]
     Active Substance: HOMEOPATHICS
     Indication: ANXIETY
     Dosage: ?          QUANTITY:3 DF DOSAGE FORM;  3 SPRAYS?
     Route: 048
     Dates: start: 20150801, end: 20170831
  11. SILVER [Concomitant]
     Active Substance: SILVER

REACTIONS (9)
  - Respiratory failure [None]
  - Pyrexia [None]
  - Pancreatitis [None]
  - Ill-defined disorder [None]
  - Renal failure [None]
  - Poor quality drug administered [None]
  - Product contamination [None]
  - Multiple organ dysfunction syndrome [None]
  - Sepsis [None]

NARRATIVE: CASE EVENT DATE: 20170709
